FAERS Safety Report 20495649 (Version 1)
Quarter: 2022Q1

REPORT INFORMATION
  Report Type: Spontaneous
  Country: US (occurrence: US)
  Receive Date: 20220221
  Receipt Date: 20220221
  Transmission Date: 20220423
  Serious: Yes (Life-Threatening, Hospitalization, Other)
  Sender: FDA-Public Use
  Company Number: US-MACLEODS PHARMACEUTICALS US LTD-MAC2022034424

PATIENT

DRUGS (8)
  1. OLANZAPINE [Suspect]
     Active Substance: OLANZAPINE
     Indication: Product used for unknown indication
     Dosage: 5 MILLIGRAM, QD
     Route: 065
  2. OLANZAPINE [Suspect]
     Active Substance: OLANZAPINE
     Dosage: 30 MILLIGRAM, QD (GRADUALLY TITRATED )
     Route: 065
  3. NIFEDIPINE [Concomitant]
     Active Substance: NIFEDIPINE
     Indication: Hypertension
     Dosage: 30 MILLIGRAM, QD (EXTENDED-RELEASE )
     Route: 065
  4. Fluphenazine decanoat [Concomitant]
     Indication: Mental disorder
     Dosage: UNK, 25 TO 75 MG  EVERY 2 WEEKS
     Route: 030
  5. Fluphenazine decanoat [Concomitant]
     Dosage: 75 MILLIGRAM, EVERY 2 WEEKS
     Route: 030
  6. CHLORPROMAZINE [Concomitant]
     Active Substance: CHLORPROMAZINE
     Indication: Mental disorder
     Dosage: 1800 MILLIGRAM, QD
     Route: 065
  7. HALOPERIDOL [Concomitant]
     Active Substance: HALOPERIDOL
     Indication: Mental disorder
     Dosage: 40 MILLIGRAM, QD
     Route: 065
  8. DIVALPROEX SODIUM [Concomitant]
     Active Substance: DIVALPROEX SODIUM
     Indication: Mental disorder
     Dosage: 750 MILLIGRAM, BID
     Route: 065

REACTIONS (4)
  - Diabetes mellitus [Recovered/Resolved]
  - Diabetic ketoacidosis [Recovered/Resolved]
  - Orthostatic hypotension [Unknown]
  - Weight increased [Recovering/Resolving]
